FAERS Safety Report 7527283-3 (Version None)
Quarter: 2011Q2

REPORT INFORMATION
  Report Type: 
  Country: None (occurrence: None)
  Receive Date: 20110603
  Receipt Date: 20110603
  Transmission Date: 20111010
  Serious: Yes (Life-Threatening)
  Sender: FDA-Public Use
  Company Number: None

PATIENT
  Age: 81 Year
  Sex: Male
  Weight: 107.9561 kg

DRUGS (1)
  1. PRADAXA [Suspect]
     Indication: CARDIOVASCULAR DISORDER
     Dosage: 2 TWO DAILY TWO 10 HRS
     Dates: start: 20110506, end: 20110514

REACTIONS (7)
  - OESOPHAGEAL OEDEMA [None]
  - ABDOMINAL DISTENSION [None]
  - HEADACHE [None]
  - DYSPHAGIA [None]
  - APHAGIA [None]
  - ASTHENIA [None]
  - OROPHARYNGEAL PAIN [None]
